FAERS Safety Report 18341265 (Version 1)
Quarter: 2020Q4

REPORT INFORMATION
  Report Type: Spontaneous
  Country: IE (occurrence: IE)
  Receive Date: 20201003
  Receipt Date: 20201003
  Transmission Date: 20210113
  Serious: No
  Sender: FDA-Public Use
  Company Number: IE-LUPIN PHARMACEUTICALS INC.-2020-06139

PATIENT
  Age: 32 Year
  Sex: Female

DRUGS (5)
  1. BETAMETHASONE. [Suspect]
     Active Substance: BETAMETHASONE
     Indication: STEROID THERAPY
     Dosage: UNK
     Route: 065
  2. COLECALCIFEROL [Suspect]
     Active Substance: CHOLECALCIFEROL
     Indication: VITAMIN SUPPLEMENTATION
     Dosage: 1000 INTERNATIONAL UNIT, QD
     Route: 065
  3. HYDRALAZINE [Suspect]
     Active Substance: HYDRALAZINE HYDROCHLORIDE
     Indication: PRE-ECLAMPSIA
     Dosage: UNK
     Route: 065
  4. LABETALOL [Suspect]
     Active Substance: LABETALOL\LABETALOL HYDROCHLORIDE
     Indication: PRE-ECLAMPSIA
     Dosage: 200 MILLIGRAM, BID
     Route: 065
  5. SODIUM CHLORIDE. [Suspect]
     Active Substance: SODIUM CHLORIDE
     Indication: HYPERCALCAEMIA
     Dosage: UNK
     Route: 042

REACTIONS (1)
  - Exposure during pregnancy [Unknown]
